FAERS Safety Report 7200549-2 (Version None)
Quarter: 2010Q4

REPORT INFORMATION
  Report Type: 
  Country: None (occurrence: None)
  Receive Date: 20101228
  Receipt Date: 20101224
  Transmission Date: 20110411
  Serious: Yes (Other)
  Sender: FDA-Public Use
  Company Number: JP-B.I. PHARMACEUTICALS,INC./RIDGEFIELD-2010-BP-13297NB

PATIENT
  Sex: Female
  Weight: 47.9 kg

DRUGS (3)
  1. MICARDIS [Suspect]
     Indication: HYPERTENSION
     Dosage: 20 MG
     Route: 048
     Dates: start: 20101007, end: 20101109
  2. OMEPRAL [Concomitant]
     Dosage: 20 MG
     Route: 048
  3. ALINAMIN-F [Concomitant]
     Dosage: 50 MG
     Route: 048

REACTIONS (1)
  - VENTRICULAR EXTRASYSTOLES [None]
